FAERS Safety Report 15615898 (Version 10)
Quarter: 2022Q2

REPORT INFORMATION
  Report Type: Report from Study
  Country: CN (occurrence: None)
  Receive Date: 20181114
  Receipt Date: 20220503
  Transmission Date: 20220720
  Serious: Yes (Death, Hospitalization)
  Sender: FDA-Public Use
  Company Number: CN-ROCHE-2213932

PATIENT
  Age: 80 Year
  Sex: Male
  Weight: 70 kg

DRUGS (17)
  1. ATEZOLIZUMAB [Suspect]
     Active Substance: ATEZOLIZUMAB
     Indication: Non-small cell lung cancer metastatic
     Dosage: DATE OF MOST RECENT DOSE OF ATEZOLIZUMAB PRIOR TO SAE ONSET 08/NOV/2018
     Route: 041
     Dates: start: 20181108, end: 20181108
  2. FOLIC ACID [Concomitant]
     Active Substance: FOLIC ACID
     Route: 048
     Dates: start: 20180918, end: 20181107
  3. POTASSIUM CHLORIDE [Concomitant]
     Active Substance: POTASSIUM CHLORIDE
     Dates: start: 20181106, end: 20181106
  4. POTASSIUM CHLORIDE [Concomitant]
     Active Substance: POTASSIUM CHLORIDE
     Route: 042
     Dates: start: 20181110, end: 20181111
  5. MOSAPRIDE [Concomitant]
     Active Substance: MOSAPRIDE
     Indication: Decreased appetite
     Route: 048
     Dates: start: 20181109, end: 20181110
  6. METOCLOPRAMIDE [Concomitant]
     Active Substance: METOCLOPRAMIDE
     Indication: Decreased appetite
     Route: 042
     Dates: start: 20181109, end: 20181109
  7. METOCLOPRAMIDE [Concomitant]
     Active Substance: METOCLOPRAMIDE
     Route: 042
     Dates: start: 20181110, end: 20181110
  8. PANTOPRAZOLE SODIUM [Concomitant]
     Active Substance: PANTOPRAZOLE SODIUM
     Indication: Decreased appetite
     Route: 015
     Dates: start: 20181109, end: 20181109
  9. PANTOPRAZOLE SODIUM [Concomitant]
     Active Substance: PANTOPRAZOLE SODIUM
     Route: 042
     Dates: start: 20181110, end: 20181111
  10. PIPERACILLIN AND TAZOBACTAM [Concomitant]
     Active Substance: PIPERACILLIN SODIUM\TAZOBACTAM SODIUM
     Route: 042
     Dates: start: 20181110, end: 20181111
  11. GLUTATHIONE REDUCED [Concomitant]
     Route: 042
     Dates: start: 20181110, end: 20181110
  12. GLUTATHIONE REDUCED [Concomitant]
     Route: 042
     Dates: start: 20181110, end: 20181110
  13. NOREPINEPHRINE BITARTRATE [Concomitant]
     Active Substance: NOREPINEPHRINE BITARTRATE
     Route: 042
     Dates: start: 20181110, end: 20181110
  14. NOREPINEPHRINE BITARTRATE [Concomitant]
     Active Substance: NOREPINEPHRINE BITARTRATE
     Route: 042
     Dates: start: 20181110, end: 20181110
  15. HEPARIN SODIUM [Concomitant]
     Active Substance: HEPARIN SODIUM
     Dates: start: 20181110, end: 20181110
  16. LIDOCAINE HYDROCHLORIDE [Concomitant]
     Active Substance: LIDOCAINE HYDROCHLORIDE
     Route: 058
     Dates: start: 20181110, end: 20181110
  17. INSULIN NOS [Concomitant]
     Active Substance: INSULIN NOS
     Route: 058
     Dates: start: 20181110, end: 20181110

REACTIONS (1)
  - Acute left ventricular failure [Fatal]

NARRATIVE: CASE EVENT DATE: 20181110
